FAERS Safety Report 8795208 (Version 3)
Quarter: 2015Q2

REPORT INFORMATION
  Report Type: Report from Study
  Country: US (occurrence: US)
  Receive Date: 20120917
  Receipt Date: 20150402
  Transmission Date: 20150821
  Serious: Yes (Death)
  Sender: FDA-Public Use
  Company Number: US-ROCHE-1128615

PATIENT
  Sex: Female

DRUGS (7)
  1. NAVELBINE [Concomitant]
     Active Substance: VINORELBINE TARTRATE
  2. DECADRON [Concomitant]
     Active Substance: DEXAMETHASONE
     Route: 065
  3. TAGAMET [Concomitant]
     Active Substance: CIMETIDINE
     Route: 065
  4. TAXOL [Concomitant]
     Active Substance: PACLITAXEL
     Route: 042
  5. AVASTIN [Suspect]
     Active Substance: BEVACIZUMAB
     Indication: CERVIX CARCINOMA
     Route: 042
     Dates: start: 20090716, end: 20090716
  6. BENADRYL [Concomitant]
     Active Substance: DIPHENHYDRAMINE HYDROCHLORIDE
     Route: 065
  7. GRANISETRON [Concomitant]
     Active Substance: GRANISETRON
     Route: 065

REACTIONS (2)
  - Off label use [Unknown]
  - Disease progression [Fatal]
